FAERS Safety Report 5261257-0 (Version None)
Quarter: 2007Q1

REPORT INFORMATION
  Report Type: 
  Country: None (occurrence: None)
  Receive Date: 20070309
  Receipt Date: 20070227
  Transmission Date: 20070707
  Serious: Yes (Hospitalization)
  Sender: FDA-Public Use
  Company Number: GB-PFIZER INC-2007016342

PATIENT
  Sex: Female

DRUGS (2)
  1. ZYVOX [Suspect]
  2. AMITRIPTYLINE HCL [Interacting]

REACTIONS (2)
  - DRUG INTERACTION [None]
  - NERVOUS SYSTEM DISORDER [None]
